FAERS Safety Report 8604969-0 (Version None)
Quarter: 2012Q3

REPORT INFORMATION
  Report Type: 
  Country: None (occurrence: None)
  Receive Date: 20120820
  Receipt Date: 20120815
  Transmission Date: 20120928
  Serious: Yes (Hospitalization, Other)
  Sender: FDA-Public Use
  Company Number: BR-PFIZER INC-2012199520

PATIENT
  Age: 57 Year
  Sex: Male

DRUGS (4)
  1. ALPRAZOLAM [Suspect]
     Indication: ANXIETY
     Dosage: 2 MG, 1X/DAY
     Route: 048
     Dates: start: 20100101
  2. ESCITALOPRAM OXALATE [Concomitant]
     Indication: ANXIETY
     Dosage: UNK
     Dates: start: 20120601
  3. LUFTAL [Concomitant]
     Indication: GASTRIC DISORDER
     Dosage: UNK
     Dates: start: 19820101
  4. OMEPRAZOLE [Concomitant]
     Indication: GASTRIC DISORDER
     Dosage: UNK
     Dates: start: 20070101

REACTIONS (2)
  - JOINT INJURY [None]
  - INFECTION [None]
